FAERS Safety Report 14274716 (Version 1)
Quarter: 2017Q4

REPORT INFORMATION
  Report Type: Spontaneous
  Country: US (occurrence: US)
  Receive Date: 20171212
  Receipt Date: 20171212
  Transmission Date: 20180321
  Serious: Yes (Hospitalization)
  Sender: FDA-Public Use
  Company Number: None

PATIENT
  Sex: Male

DRUGS (21)
  1. AMOXICILLIN. [Concomitant]
     Active Substance: AMOXICILLIN
  2. ROSUVASTATIN. [Concomitant]
     Active Substance: ROSUVASTATIN
  3. FISH OIL [Concomitant]
     Active Substance: FISH OIL
  4. ANUCORT-HC [Concomitant]
     Active Substance: HYDROCORTISONE ACETATE
  5. PLAQUENIL [Concomitant]
     Active Substance: HYDROXYCHLOROQUINE SULFATE
  6. PREDNISONE. [Concomitant]
     Active Substance: PREDNISONE
  7. OXAPROZIN. [Concomitant]
     Active Substance: OXAPROZIN
  8. OMEPRAZOLE. [Concomitant]
     Active Substance: OMEPRAZOLE
  9. METOPROLOL TARTRATE. [Concomitant]
     Active Substance: METOPROLOL TARTRATE
  10. HYOMAX [Concomitant]
     Active Substance: HYOSCYAMINE SULFATE
  11. AUGMENTIN [Concomitant]
     Active Substance: AMOXICILLIN\CLAVULANATE POTASSIUM
  12. ENCONAZOLE [Concomitant]
  13. DEXAMETHASON [Concomitant]
     Active Substance: DEXAMETHASONE
  14. XELJANZ XR [Suspect]
     Active Substance: TOFACITINIB CITRATE
     Indication: RHEUMATOID ARTHRITIS
     Route: 048
     Dates: start: 20170524
  15. HYDROXYCHLOR [Concomitant]
     Active Substance: HYDROXYCHLOROQUINE
  16. CRESTOR [Concomitant]
     Active Substance: ROSUVASTATIN CALCIUM
  17. METHOTREXATE. [Concomitant]
     Active Substance: METHOTREXATE
  18. HYDROCO-APAP [Concomitant]
  19. LEVAQUIN [Concomitant]
     Active Substance: LEVOFLOXACIN
  20. FOLIC ACID. [Concomitant]
     Active Substance: FOLIC ACID
  21. VITAMIN D3 [Concomitant]
     Active Substance: CHOLECALCIFEROL

REACTIONS (2)
  - Drug dose omission [None]
  - Pancreatitis [None]
